FAERS Safety Report 15717234 (Version 2)
Quarter: 2019Q1

REPORT INFORMATION
  Report Type: Spontaneous
  Country: US (occurrence: US)
  Receive Date: 20181213
  Receipt Date: 20190309
  Transmission Date: 20190417
  Serious: Yes (Other)
  Sender: FDA-Public Use
  Company Number: PHEH2018US052542

PATIENT
  Sex: Male

DRUGS (1)
  1. TASIGNA [Suspect]
     Active Substance: NILOTINIB
     Indication: CHRONIC MYELOID LEUKAEMIA
     Dosage: 400 MG, BID
     Route: 048
     Dates: start: 201001, end: 2014

REACTIONS (15)
  - Cellulitis [Unknown]
  - Atrial fibrillation [Unknown]
  - Peripheral vascular disorder [Unknown]
  - Hypertension [Unknown]
  - Peripheral ischaemia [Unknown]
  - Skin papilloma [Unknown]
  - Gangrene [Unknown]
  - Neurogenic bladder [Unknown]
  - Necrosis [Unknown]
  - Myocardial infarction [Unknown]
  - Peripheral arterial occlusive disease [Unknown]
  - Folliculitis [Unknown]
  - Cardiovascular disorder [Unknown]
  - Deep vein thrombosis [Unknown]
  - Cataract [Unknown]

NARRATIVE: CASE EVENT DATE: 2012
